FAERS Safety Report 13014000 (Version 1)
Quarter: 2016Q4

REPORT INFORMATION
  Report Type: Report from Study
  Country: None (occurrence: US)
  Receive Date: 20161209
  Receipt Date: 20161209
  Transmission Date: 20170207
  Serious: Yes (Hospitalization, Other)
  Sender: FDA-Public Use
  Company Number: US-ABBVIE-16K-163-1801597-00

PATIENT
  Sex: Male
  Weight: 95.79 kg

DRUGS (1)
  1. HUMIRA [Suspect]
     Active Substance: ADALIMUMAB
     Indication: PSORIASIS
     Route: 058
     Dates: start: 2015, end: 201605

REACTIONS (2)
  - Cough [Recovering/Resolving]
  - Pulmonary mycosis [Recovering/Resolving]

NARRATIVE: CASE EVENT DATE: 2016
